FAERS Safety Report 24586436 (Version 1)
Quarter: 2024Q4

REPORT INFORMATION
  Report Type: Spontaneous
  Country: US (occurrence: US)
  Receive Date: 20241106
  Receipt Date: 20241106
  Transmission Date: 20250115
  Serious: No
  Sender: BIOGEN
  Company Number: US-BIOGEN-2024BI01288795

PATIENT
  Age: 27 Year
  Sex: Female

DRUGS (3)
  1. ZURZUVAE [Suspect]
     Active Substance: ZURANOLONE
     Indication: Product used for unknown indication
     Route: 050
     Dates: start: 20241018
  2. PROZAC [Concomitant]
     Active Substance: FLUOXETINE HYDROCHLORIDE
     Indication: Product used for unknown indication
     Route: 050
  3. LATUDA [Concomitant]
     Active Substance: LURASIDONE HYDROCHLORIDE
     Indication: Product used for unknown indication
     Route: 050

REACTIONS (4)
  - Dyskinesia [Unknown]
  - Dysphemia [Unknown]
  - Feeling abnormal [Unknown]
  - Confusional state [Unknown]

NARRATIVE: CASE EVENT DATE: 20241026
